FAERS Safety Report 7224901-4 (Version None)
Quarter: 2011Q1

REPORT INFORMATION
  Report Type: 
  Country: None (occurrence: None)
  Receive Date: 20110113
  Receipt Date: 20101231
  Transmission Date: 20110831
  Serious: Yes (Other)
  Sender: FDA-Public Use
  Company Number: IL-SANOFI-AVENTIS-2011SA000064

PATIENT
  Age: 46 Year
  Sex: Male

DRUGS (3)
  1. BISOPROLOL [Concomitant]
  2. COUMADIN [Concomitant]
  3. MULTAQ [Suspect]
     Route: 048
     Dates: start: 20100101

REACTIONS (3)
  - VENTRICULAR FIBRILLATION [None]
  - ATRIAL FIBRILLATION [None]
  - OFF LABEL USE [None]
